FAERS Safety Report 9965998 (Version 1)
Quarter: 2014Q1

REPORT INFORMATION
  Report Type: Report from Study
  Country: US (occurrence: US)
  Receive Date: 20140305
  Receipt Date: 20140305
  Transmission Date: 20141002
  Serious: No
  Sender: FDA-Public Use
  Company Number: US-ABBVIE-13P-163-1127562-00

PATIENT
  Age: 19 Year
  Sex: Female

DRUGS (6)
  1. HUMIRA [Suspect]
     Indication: COLITIS ULCERATIVE
     Dates: start: 20130622
  2. MULTIVITAMIN [Concomitant]
     Indication: VITAMIN SUPPLEMENTATION
     Dosage: TEEN VITAMIN BY MOUTH DAILY
  3. LIALDA [Concomitant]
     Indication: COLITIS ULCERATIVE
     Dosage: 4 TABLETS BY MOUTH DAILY
  4. PROBIOTIC [Concomitant]
     Indication: COLITIS ULCERATIVE
     Dosage: BY MOUTH DAILY
  5. OMEPRAZOLE [Concomitant]
     Indication: GASTRIC DISORDER
     Dosage: 40 MG BY MOUTH DAILY
  6. AZATHIOPRINE [Concomitant]
     Indication: PROPHYLAXIS
     Dosage: 50 MG DAILY

REACTIONS (1)
  - Alopecia [Not Recovered/Not Resolved]
